FAERS Safety Report 17967008 (Version 1)
Quarter: 2020Q3

REPORT INFORMATION
  Report Type: Spontaneous
  Country: CZ (occurrence: CZ)
  Receive Date: 20200701
  Receipt Date: 20200701
  Transmission Date: 20201103
  Serious: Yes (Hospitalization)
  Sender: FDA-Public Use
  Company Number: CZ-B.I. PHARMACEUTICALS,INC./RIDGEFIELD-2020-BI-031253

PATIENT
  Age: 78 Year
  Sex: Female

DRUGS (1)
  1. PRADAXA [Suspect]
     Active Substance: DABIGATRAN ETEXILATE MESYLATE
     Indication: PRODUCT USED FOR UNKNOWN INDICATION
     Route: 048

REACTIONS (6)
  - Bradyarrhythmia [Unknown]
  - Retroperitoneal haemorrhage [Unknown]
  - Melaena [Unknown]
  - Renal failure [Unknown]
  - Anaemia [Unknown]
  - Hypocoagulable state [Unknown]

NARRATIVE: CASE EVENT DATE: 20200506
